FAERS Safety Report 25430102 (Version 1)
Quarter: 2025Q2

REPORT INFORMATION
  Report Type: Spontaneous
  Country: NO (occurrence: NO)
  Receive Date: 20250612
  Receipt Date: 20250612
  Transmission Date: 20250717
  Serious: Yes (Life-Threatening)
  Sender: TEVA
  Company Number: None

PATIENT
  Age: 86 Year
  Sex: Female

DRUGS (4)
  1. OLANZAPINE [Suspect]
     Active Substance: OLANZAPINE
     Indication: Manic symptom
     Dosage: REDUCED DOSE FROM 7.5 MG TO 5 MG MID FEBRUARY APPROXIMATELY
     Route: 048
     Dates: start: 202502
  2. OLANZAPINE [Suspect]
     Active Substance: OLANZAPINE
     Indication: Manic symptom
     Dosage: THE DOSE WAS REDUCED FROM 10 MG TO 7.5 MG BETWEEN 09/01/2025 AND 16/01/2025 AND WAS CONTINUED TO ...
     Route: 048
     Dates: start: 202501, end: 202502
  3. OLANZAPINE [Suspect]
     Active Substance: OLANZAPINE
     Indication: Manic symptom
     Dosage: UNKNOWN WHEN THE MEDICATION STARTED.
     Route: 048
     Dates: end: 202411
  4. OLANZAPINE [Suspect]
     Active Substance: OLANZAPINE
     Indication: Manic symptom
     Dosage: OLANZAPINE TEVA
     Route: 048
     Dates: start: 20241104, end: 202501

REACTIONS (2)
  - Pulmonary embolism [Unknown]
  - Respiratory failure [Unknown]
